FAERS Safety Report 5135019-9 (Version None)
Quarter: 2006Q4

REPORT INFORMATION
  Report Type: 
  Country: None (occurrence: None)
  Receive Date: 20061025
  Receipt Date: 20061017
  Transmission Date: 20070319
  Serious: Yes (Disabling)
  Sender: FDA-Public Use
  Company Number: IT-MERCK-0610ITA00021

PATIENT
  Age: 80 Year
  Sex: Female

DRUGS (2)
  1. FOSAMAX [Suspect]
     Indication: PLASMACYTOSIS
     Route: 048
     Dates: start: 20050424, end: 20060324
  2. ZOLEDRONIC ACID [Suspect]
     Indication: PLASMACYTOSIS
     Route: 041
     Dates: start: 20041226, end: 20050324

REACTIONS (3)
  - BACTERIAL CULTURE POSITIVE [None]
  - FISTULA [None]
  - OSTEITIS [None]
